FAERS Safety Report 20565064 (Version 1)
Quarter: 2022Q1

REPORT INFORMATION
  Report Type: Report from Study
  Country: US (occurrence: None)
  Receive Date: 20220308
  Receipt Date: 20220308
  Transmission Date: 20220423
  Serious: No
  Sender: FDA-Public Use
  Company Number: US-Spark Therapeutics, Inc.-US-SPK-20-00072

PATIENT
  Age: 7 Year
  Sex: Female

DRUGS (20)
  1. LUXTURNA [Suspect]
     Active Substance: VORETIGENE NEPARVOVEC-RZYL
     Indication: Leber^s congenital amaurosis
     Dosage: SUBRETINAL, LEFT EYE
     Dates: start: 20181113, end: 20181113
  2. LUXTURNA [Suspect]
     Active Substance: VORETIGENE NEPARVOVEC-RZYL
     Dosage: SUBRETINAL, RIGHT EYE
     Dates: start: 20181120, end: 20181120
  3. LUXTURNA [Suspect]
     Active Substance: VORETIGENE NEPARVOVEC-RZYL
     Indication: Leber^s congenital amaurosis
     Dosage: LEFT EYE
     Dates: start: 20181113, end: 20181113
  4. LUXTURNA [Suspect]
     Active Substance: VORETIGENE NEPARVOVEC-RZYL
     Dosage: RIGHT EYE
     Dates: start: 20181120, end: 20181120
  5. PREDNISONE [Concomitant]
     Active Substance: PREDNISONE
     Indication: Prophylaxis
     Route: 048
     Dates: start: 20181110, end: 20181123
  6. PREDNISONE [Concomitant]
     Active Substance: PREDNISONE
     Route: 048
     Dates: start: 20181124, end: 20181125
  7. PREDNISONE [Concomitant]
     Active Substance: PREDNISONE
     Route: 048
     Dates: start: 20181126, end: 20181127
  8. PREDNISONE [Concomitant]
     Active Substance: PREDNISONE
     Route: 048
     Dates: start: 20181128, end: 20181129
  9. PREDNISONE [Concomitant]
     Active Substance: PREDNISONE
     Route: 048
     Dates: start: 20181130, end: 20181201
  10. PREDNISONE [Concomitant]
     Active Substance: PREDNISONE
     Route: 048
     Dates: start: 20181202, end: 20181203
  11. ATROPINE [Concomitant]
     Active Substance: ATROPINE
     Indication: Prophylaxis
     Dates: start: 20181114, end: 20181119
  12. ATROPINE [Concomitant]
     Active Substance: ATROPINE
     Dates: start: 20181121, end: 20181126
  13. MAXITROL [Concomitant]
     Active Substance: DEXAMETHASONE\NEOMYCIN SULFATE\POLYMYXIN B SULFATE
     Indication: Prophylaxis
     Dates: start: 20181114, end: 20181121
  14. MAXITROL [Concomitant]
     Active Substance: DEXAMETHASONE\NEOMYCIN SULFATE\POLYMYXIN B SULFATE
     Dates: start: 20181121, end: 20181128
  15. MAXITROL [Concomitant]
     Active Substance: DEXAMETHASONE\NEOMYCIN SULFATE\POLYMYXIN B SULFATE
     Dates: start: 20181128, end: 20181205
  16. MAXITROL [Concomitant]
     Active Substance: DEXAMETHASONE\NEOMYCIN SULFATE\POLYMYXIN B SULFATE
     Dates: start: 20181205, end: 20181212
  17. MAXITROL [Concomitant]
     Active Substance: DEXAMETHASONE\NEOMYCIN SULFATE\POLYMYXIN B SULFATE
     Dates: start: 20181121, end: 20181128
  18. MAXITROL [Concomitant]
     Active Substance: DEXAMETHASONE\NEOMYCIN SULFATE\POLYMYXIN B SULFATE
     Dates: start: 20181128, end: 20181205
  19. MAXITROL [Concomitant]
     Active Substance: DEXAMETHASONE\NEOMYCIN SULFATE\POLYMYXIN B SULFATE
     Dates: start: 20181205, end: 20181212
  20. MAXITROL [Concomitant]
     Active Substance: DEXAMETHASONE\NEOMYCIN SULFATE\POLYMYXIN B SULFATE
     Dates: start: 20181212, end: 20181219

REACTIONS (1)
  - Chorioretinal atrophy [Not Recovered/Not Resolved]

NARRATIVE: CASE EVENT DATE: 20191111
